FAERS Safety Report 15555959 (Version 1)
Quarter: 2018Q4

REPORT INFORMATION
  Report Type: Spontaneous
  Country: US (occurrence: US)
  Receive Date: 20181026
  Receipt Date: 20181026
  Transmission Date: 20190205
  Serious: Yes (Other)
  Sender: FDA-Public Use
  Company Number: US-TEVA-2018-US-968994

PATIENT
  Sex: Female

DRUGS (2)
  1. OCREVUS [Suspect]
     Active Substance: OCRELIZUMAB
     Route: 065
  2. COPAXONE [Suspect]
     Active Substance: GLATIRAMER ACETATE
     Indication: PRODUCT USED FOR UNKNOWN INDICATION
     Route: 065

REACTIONS (8)
  - Dysuria [Unknown]
  - Balance disorder [Unknown]
  - Gait inability [Unknown]
  - Multiple sclerosis relapse [Unknown]
  - Speech disorder [Unknown]
  - Product substitution issue [Unknown]
  - Impaired driving ability [Unknown]
  - Impaired gastric emptying [Unknown]
